FAERS Safety Report 7079997-X (Version None)
Quarter: 2010Q4

REPORT INFORMATION
  Report Type: 
  Country: None (occurrence: None)
  Receive Date: 20101102
  Receipt Date: 20091208
  Transmission Date: 20110411
  Serious: No
  Sender: FDA-Public Use
  Company Number: US-ABBOTT-09P-163-0613880-00

PATIENT

DRUGS (1)
  1. BIAXIN [Suspect]
     Indication: SINUSITIS

REACTIONS (2)
  - NAUSEA [None]
  - VOMITING [None]
